FAERS Safety Report 4830373-7 (Version None)
Quarter: 2005Q4

REPORT INFORMATION
  Report Type: 
  Country: None (occurrence: None)
  Receive Date: 20051117
  Receipt Date: 20050622
  Transmission Date: 20060501
  Serious: Yes (Other)
  Sender: FDA-Public Use
  Company Number: PHEH2005US07173

PATIENT
  Age: 66 Year
  Sex: Male

DRUGS (4)
  1. ZOMETA [Suspect]
     Indication: MULTIPLE MYELOMA
     Dosage: 4 MG UNSPECIFIED
     Dates: start: 20030512, end: 20030811
  2. ZOMETA [Suspect]
     Dates: start: 20050201, end: 20050601
  3. THALIDOMID [Concomitant]
     Indication: MULTIPLE MYELOMA
     Dosage: 200 MG, QD
  4. DECADRON [Concomitant]
     Indication: MULTIPLE MYELOMA
     Dosage: 20 MG EVERY WEEK

REACTIONS (2)
  - DENTAL TREATMENT [None]
  - OSTEONECROSIS [None]
